FAERS Safety Report 4935174-7 (Version None)
Quarter: 2006Q1

REPORT INFORMATION
  Report Type: 
  Country: None (occurrence: None)
  Receive Date: 20060303
  Receipt Date: 20060303
  Transmission Date: 20060701
  Serious: No
  Sender: FDA-Public Use
  Company Number: None

PATIENT
  Age: 75 Year
  Sex: Female
  Weight: 48.4895 kg

DRUGS (5)
  1. CYMBALTA [Suspect]
     Indication: DEPRESSION
     Dosage: 60 MG PO DAILY
     Route: 048
     Dates: start: 20050926
  2. CYMBALTA [Suspect]
     Indication: NEUROPATHY PERIPHERAL
     Dosage: 60 MG PO DAILY
     Route: 048
     Dates: start: 20050926
  3. CYMBALTA [Suspect]
     Indication: PAIN
     Dosage: 60 MG PO DAILY
     Route: 048
     Dates: start: 20050926
  4. ZOCOR [Suspect]
     Indication: HYPERLIPIDAEMIA
     Dosage: 80 MG PO QHS
     Route: 048
     Dates: start: 20051220, end: 20060103
  5. LIPITOR [Suspect]
     Indication: HYPERLIPIDAEMIA
     Dosage: 40 MG HS
     Dates: start: 20051005, end: 20051214

REACTIONS (2)
  - CEREBROVASCULAR ACCIDENT [None]
  - LIVER FUNCTION TEST ABNORMAL [None]
